FAERS Safety Report 4397967-7 (Version None)
Quarter: 2004Q3

REPORT INFORMATION
  Report Type: 
  Country: None (occurrence: None)
  Receive Date: 20040713
  Receipt Date: 20040625
  Transmission Date: 20050211
  Serious: Yes (Hospitalization)
  Sender: FDA-Public Use
  Company Number: US-JNJFOC-20040606924

PATIENT
  Age: 29 Year
  Sex: Female

DRUGS (2)
  1. LOPERAMIDE [Suspect]
     Indication: DIARRHOEA
  2. ANTIBIOTIC (ANTIBIOTICS) [Concomitant]

REACTIONS (7)
  - CAECITIS [None]
  - COLON GANGRENE [None]
  - FLATULENCE [None]
  - ILEAL ULCER [None]
  - INTESTINAL DILATATION [None]
  - LARGE INTESTINE PERFORATION [None]
  - PERITONITIS [None]
